FAERS Safety Report 5904866-5 (Version None)
Quarter: 2008Q4

REPORT INFORMATION
  Report Type: 
  Country: None (occurrence: None)
  Receive Date: 20081001
  Receipt Date: 20080925
  Transmission Date: 20090506
  Serious: Yes (Hospitalization)
  Sender: FDA-Public Use
  Company Number: A0749242A

PATIENT
  Age: 71 Year
  Sex: Female

DRUGS (4)
  1. ADVAIR DISKUS 100/50 [Suspect]
     Indication: ASTHMA
     Dosage: 1PUFF PER DAY
     Route: 055
     Dates: start: 19980901
  2. SOY HORMONE REPLACEMENT [Concomitant]
  3. ARMOUR THYROID [Concomitant]
  4. ALBUTEROL [Concomitant]

REACTIONS (1)
  - MYOCARDIAL INFARCTION [None]
